FAERS Safety Report 7761237 (Version 2)
Quarter: 2016Q1

REPORT INFORMATION
  Report Type: Spontaneous
  Country: FR (occurrence: FR)
  Receive Date: 20110114
  Receipt Date: 20160202
  Transmission Date: 20160526
  Serious: Yes (Other)
  Sender: FDA-Public Use
  Company Number: FR-BRISTOL-MYERS SQUIBB COMPANY-15482177

PATIENT
  Age: 0 Day
  Sex: Female
  Weight: 2.37 kg

DRUGS (6)
  1. TAXOL [Suspect]
     Active Substance: PACLITAXEL
     Indication: PRODUCT USED FOR UNKNOWN INDICATION
     Dosage: 80 MG/M2, UNK
     Route: 064
  2. ENDOXAN [Suspect]
     Active Substance: CYCLOPHOSPHAMIDE
     Indication: PRODUCT USED FOR UNKNOWN INDICATION
     Dosage: 790 MG, UNK
     Route: 064
  3. LOXEN [Concomitant]
     Active Substance: NICARDIPINE HYDROCHLORIDE
     Indication: PRODUCT USED FOR UNKNOWN INDICATION
     Dosage: UNK
     Route: 064
  4. FARMORUBICINE [Suspect]
     Active Substance: EPIRUBICIN HYDROCHLORIDE
     Indication: PRODUCT USED FOR UNKNOWN INDICATION
     Dosage: 160 MG, UNK
     Route: 064
  5. FLUORO URACIL [Suspect]
     Active Substance: FLUOROURACIL
     Indication: PRODUCT USED FOR UNKNOWN INDICATION
     Dosage: 790 MG, UNK
     Route: 064
  6. CELESTENE [Concomitant]
     Active Substance: BETAMETHASONE
     Indication: PRODUCT USED FOR UNKNOWN INDICATION
     Dosage: UNK
     Route: 064

REACTIONS (4)
  - Foetal exposure during pregnancy [Unknown]
  - Hypoglycaemia neonatal [Recovered/Resolved]
  - Low birth weight baby [Unknown]
  - Foetal growth restriction [Recovering/Resolving]

NARRATIVE: CASE EVENT DATE: 20101102
